FAERS Safety Report 4826280-6 (Version None)
Quarter: 2005Q4

REPORT INFORMATION
  Report Type: 
  Country: None (occurrence: None)
  Receive Date: 20051014
  Receipt Date: 20050722
  Transmission Date: 20060501
  Serious: No
  Sender: FDA-Public Use
  Company Number: 2005SP002063

PATIENT
  Age: 66 Year
  Sex: Male
  Weight: 95.2554 kg

DRUGS (6)
  1. LUNESTA [Suspect]
     Indication: INSOMNIA
     Dosage: SEE  IMAGE
     Route: 048
     Dates: start: 20050706, end: 20050706
  2. LUNESTA [Suspect]
     Indication: INSOMNIA
     Dosage: SEE  IMAGE
     Route: 048
     Dates: start: 20050707, end: 20050729
  3. LUNESTA [Suspect]
     Indication: INSOMNIA
     Dosage: SEE  IMAGE
     Route: 048
     Dates: start: 20050730
  4. TRIAMTERENE AND HYDROCHLOROTHIAZIDE [Concomitant]
  5. LEVOTHROID [Concomitant]
  6. TYLENOL (CAPLET) [Concomitant]

REACTIONS (6)
  - BLOOD PRESSURE INCREASED [None]
  - DRUG INEFFECTIVE [None]
  - FATIGUE [None]
  - INSOMNIA [None]
  - MALAISE [None]
  - SLEEP DISORDER [None]
